FAERS Safety Report 10083750 (Version 4)
Quarter: 2014Q2

REPORT INFORMATION
  Report Type: Spontaneous
  Country: GB (occurrence: None)
  Receive Date: 20140415
  Receipt Date: 20140617
  Transmission Date: 20141212
  Serious: Yes (Hospitalization, Other)
  Sender: FDA-Public Use
  Company Number: AXC-2014-000246

PATIENT
  Age: 4 Month
  Sex: Male

DRUGS (2)
  1. URSODEOXYCHOLIC ACID (URSODEOXYCHOLIC ACID) UNKNOWN) [Suspect]
     Indication: CHOLESTASIS
  2. PHENOBARBITONE /00023201/ (PHENOBARBITAL) [Concomitant]

REACTIONS (14)
  - Liver disorder [None]
  - Condition aggravated [None]
  - Weight decreased [None]
  - Coagulopathy [None]
  - Hepatitis [None]
  - Hepatic fibrosis [None]
  - Off label use [None]
  - Prothrombin time prolonged [None]
  - Blood lactic acid increased [None]
  - Hepatic steatosis [None]
  - Drug ineffective [None]
  - Hepatic cirrhosis [None]
  - Drug ineffective [None]
  - Gait disturbance [None]
